FAERS Safety Report 18156593 (Version 1)
Quarter: 2020Q3

REPORT INFORMATION
  Report Type: Spontaneous
  Country: US (occurrence: US)
  Receive Date: 20200815
  Receipt Date: 20200815
  Transmission Date: 20201103
  Serious: Yes (Hospitalization)
  Sender: FDA-Public Use
  Company Number: None

PATIENT
  Sex: Male
  Weight: 50 kg

DRUGS (5)
  1. ONCASPAR [Suspect]
     Active Substance: PEGASPARGASE
     Dates: end: 20200802
  2. METHOTREXATE. [Suspect]
     Active Substance: METHOTREXATE
     Dates: end: 20200806
  3. DAUNORUBICIN [Suspect]
     Active Substance: DAUNORUBICIN
     Dates: end: 20200806
  4. VINCRISTINE SULFATE. [Suspect]
     Active Substance: VINCRISTINE SULFATE
     Dates: end: 20200806
  5. CYTARABINE. [Suspect]
     Active Substance: CYTARABINE
     Dates: end: 20200730

REACTIONS (11)
  - Abdominal pain [None]
  - Dizziness [None]
  - Presyncope [None]
  - Heart rate increased [None]
  - Blood bilirubin increased [None]
  - Pancytopenia [None]
  - Colitis [None]
  - Constipation [None]
  - Blood pressure decreased [None]
  - Septic shock [None]
  - Poor peripheral circulation [None]

NARRATIVE: CASE EVENT DATE: 20200808
